FAERS Safety Report 10051081 (Version 3)
Quarter: 2014Q3

REPORT INFORMATION
  Report Type: Spontaneous
  Country: PT (occurrence: PT)
  Receive Date: 20140401
  Receipt Date: 20140829
  Transmission Date: 20150326
  Serious: Yes (Other)
  Sender: FDA-Public Use
  Company Number: PT-PFIZER INC-2014088023

PATIENT
  Age: 48 Year
  Sex: Female
  Weight: 50 kg

DRUGS (3)
  1. DIPHTHERIA AND TETANUS TOXOIDS NOS [Concomitant]
     Active Substance: CLOSTRIDIUM TETANI TOXOID ANTIGEN (FORMALDEHYDE INACTIVATED)\CORYNEBACTERIUM DIPHTHERIAE TOXOID ANTIGEN (FORMALDEHYDE INACTIVATED)\DIPHTHERIA AND TETANUS TOXOIDS
     Indication: PROPHYLAXIS
     Dosage: 1 DF, 1X/DAY
     Route: 030
     Dates: start: 20140303, end: 20140303
  2. DALACIN [Suspect]
     Active Substance: CLINDAMYCIN\CLINDAMYCIN PHOSPHATE
     Indication: GENITAL INFECTION BACTERIAL
     Dosage: 1 DF, 2X/DAY
     Route: 067
     Dates: start: 20140309
  3. DALACIN [Suspect]
     Active Substance: CLINDAMYCIN\CLINDAMYCIN PHOSPHATE
     Dosage: 1 DF, 2X/DAY
     Route: 067
     Dates: end: 20140315

REACTIONS (6)
  - Haematochezia [Recovered/Resolved]
  - Skin exfoliation [Recovered/Resolved]
  - Myokymia [Recovered/Resolved]
  - Chest discomfort [Recovered/Resolved]
  - Dry skin [Recovered/Resolved]
  - Diarrhoea [Recovered/Resolved]

NARRATIVE: CASE EVENT DATE: 20140309
